FAERS Safety Report 6532156-9 (Version None)
Quarter: 2010Q1

REPORT INFORMATION
  Report Type: 
  Country: None (occurrence: None)
  Receive Date: 20100107
  Receipt Date: 20100107
  Transmission Date: 20100710
  Serious: Yes (Other)
  Sender: FDA-Public Use
  Company Number: None

PATIENT
  Age: 57 Year
  Sex: Female
  Weight: 72.5755 kg

DRUGS (1)
  1. ZICAM NO-DRIP LIQUID NASAL GEL ZICAM [Suspect]
     Dosage: ONE SPRAY IN EACH NOSTRIL AS NEEDED

REACTIONS (4)
  - AGEUSIA [None]
  - ANOSMIA [None]
  - DRUG HYPERSENSITIVITY [None]
  - NASAL DISCOMFORT [None]
